FAERS Safety Report 20766613 (Version 2)
Quarter: 2022Q3

REPORT INFORMATION
  Report Type: Report from Study
  Country: CO (occurrence: CO)
  Receive Date: 20220428
  Receipt Date: 20220729
  Transmission Date: 20221027
  Serious: Yes (Other)
  Sender: FDA-Public Use
  Company Number: CO-ABBVIE-20K-036-3688117-00

PATIENT
  Sex: Female
  Weight: 90 kg

DRUGS (6)
  1. HUMIRA [Suspect]
     Active Substance: ADALIMUMAB
     Indication: Hidradenitis
     Route: 058
  2. HUMIRA [Suspect]
     Active Substance: ADALIMUMAB
     Indication: Hidradenitis
     Route: 058
     Dates: start: 20190913, end: 20201123
  3. HUMIRA [Suspect]
     Active Substance: ADALIMUMAB
     Route: 058
     Dates: start: 20201123, end: 20210818
  4. HUMIRA [Suspect]
     Active Substance: ADALIMUMAB
     Route: 058
     Dates: start: 20210910, end: 20220509
  5. COVID-19 VACCINE NOS [Suspect]
     Active Substance: COVID-19 VACCINE NOS
     Indication: COVID-19 immunisation
     Route: 030
  6. COVID-19 VACCINE NOS [Suspect]
     Active Substance: COVID-19 VACCINE NOS
     Route: 030
     Dates: start: 20210901, end: 20210901

REACTIONS (33)
  - Inflammation [Recovering/Resolving]
  - Eye irritation [Recovering/Resolving]
  - Renal disorder [Not Recovered/Not Resolved]
  - Ocular discomfort [Not Recovered/Not Resolved]
  - Vein disorder [Recovering/Resolving]
  - Discouragement [Recovering/Resolving]
  - Blood pressure abnormal [Not Recovered/Not Resolved]
  - Dry eye [Recovered/Resolved]
  - Cardiovascular disorder [Not Recovered/Not Resolved]
  - Cardiac disorder [Not Recovered/Not Resolved]
  - Anxiety [Unknown]
  - Nasal congestion [Recovering/Resolving]
  - Dry eye [Not Recovered/Not Resolved]
  - Inflammation [Recovered/Resolved]
  - Dermatitis [Not Recovered/Not Resolved]
  - Blood test abnormal [Recovering/Resolving]
  - Eye infection [Recovering/Resolving]
  - Hidradenitis [Recovering/Resolving]
  - Laboratory test abnormal [Unknown]
  - Arthralgia [Recovering/Resolving]
  - Conjunctivitis [Recovered/Resolved]
  - Pain [Not Recovered/Not Resolved]
  - Influenza [Recovered/Resolved]
  - Discomfort [Recovering/Resolving]
  - Conjunctivitis [Recovering/Resolving]
  - Peripheral swelling [Unknown]
  - Fungal infection [Not Recovered/Not Resolved]
  - Eczema [Not Recovered/Not Resolved]
  - Pyrexia [Not Recovered/Not Resolved]
  - Inflammation [Not Recovered/Not Resolved]
  - Weight abnormal [Not Recovered/Not Resolved]
  - Hyperhidrosis [Unknown]
  - Hidradenitis [Recovered/Resolved]

NARRATIVE: CASE EVENT DATE: 20200101
